FAERS Safety Report 22237752 (Version 2)
Quarter: 2024Q1

REPORT INFORMATION
  Report Type: Report from Study
  Country: US (occurrence: US)
  Receive Date: 20230421
  Receipt Date: 20240121
  Transmission Date: 20240410
  Serious: Yes (Other)
  Sender: FDA-Public Use
  Company Number: US-ABBVIE-4319625

PATIENT
  Sex: Female

DRUGS (3)
  1. HUMIRA [Suspect]
     Active Substance: ADALIMUMAB
     Indication: Psoriatic arthropathy
     Route: 058
     Dates: start: 20160916
  2. HUMIRA [Suspect]
     Active Substance: ADALIMUMAB
     Dosage: FORM STRENGTH: 40 MILLIGRAM
     Route: 058
     Dates: start: 202302
  3. HUMIRA [Suspect]
     Active Substance: ADALIMUMAB
     Route: 058
     Dates: start: 20160916, end: 202302

REACTIONS (7)
  - Burns second degree [Unknown]
  - Headache [Unknown]
  - Dizziness [Unknown]
  - Condition aggravated [Unknown]
  - Cataract [Unknown]
  - Glaucoma [Unknown]
  - Macular degeneration [Unknown]

NARRATIVE: CASE EVENT DATE: 20210101
